FAERS Safety Report 6788062-8 (Version None)
Quarter: 2010Q2

REPORT INFORMATION
  Report Type: 
  Country: None (occurrence: None)
  Receive Date: 20100623
  Receipt Date: 20080213
  Transmission Date: 20101027
  Serious: No
  Sender: FDA-Public Use
  Company Number: US-PFIZER INC-2007104646

PATIENT
  Sex: Female

DRUGS (7)
  1. GEODON [Suspect]
     Indication: AFFECTIVE DISORDER
     Dates: start: 20071031
  2. GEODON [Suspect]
     Indication: ANGER
  3. TRAZODONE HYDROCHLORIDE [Concomitant]
  4. CYMBALTA [Concomitant]
  5. CONTRACEPTIVE, UNSPECIFIED [Concomitant]
     Indication: CONTRACEPTION
  6. ANTI-ASTHMATICS [Concomitant]
     Indication: ASTHMA
  7. EQUATE [Concomitant]
     Indication: SLEEP DISORDER

REACTIONS (3)
  - HYPOAESTHESIA [None]
  - HYPOAESTHESIA ORAL [None]
  - PARAESTHESIA [None]
